FAERS Safety Report 7520224-4 (Version None)
Quarter: 2011Q2

REPORT INFORMATION
  Report Type: 
  Country: None (occurrence: None)
  Receive Date: 20110602
  Receipt Date: 20110518
  Transmission Date: 20111010
  Serious: Yes (Other)
  Sender: FDA-Public Use
  Company Number: VE-GENENTECH-319592

PATIENT
  Sex: Male

DRUGS (1)
  1. XOLAIR [Suspect]
     Indication: ASTHMA
     Dosage: UNK
     Dates: start: 20110201

REACTIONS (4)
  - ANAPHYLACTIC SHOCK [None]
  - BRONCHIAL DISORDER [None]
  - OBSTRUCTIVE AIRWAYS DISORDER [None]
  - RHINITIS [None]
